FAERS Safety Report 4333563-5 (Version None)
Quarter: 2004Q1

REPORT INFORMATION
  Report Type: 
  Country: None (occurrence: None)
  Receive Date: 20040329
  Receipt Date: 20040211
  Transmission Date: 20041129
  Serious: No
  Sender: FDA-Public Use
  Company Number: 04P-163-0250207-00

PATIENT
  Age: 72 Year
  Sex: Male
  Weight: 99.7913 kg

DRUGS (9)
  1. HUMIRA [Suspect]
     Indication: RHEUMATOID ARTHRITIS
     Dosage: 40 MG, 1 IN 2 WK, SUBCUTANEOUS
     Route: 058
     Dates: start: 20031216
  2. CELECOXIB [Concomitant]
  3. BISOPROLOL FUMARATE [Concomitant]
  4. COUMADIN [Concomitant]
  5. FUROSEMIDE [Concomitant]
  6. POTASSIUM CHLORIDE [Concomitant]
  7. VICODIN [Concomitant]
  8. COMBIVENT [Concomitant]
  9. OXYGEN [Concomitant]

REACTIONS (1)
  - CONFUSIONAL STATE [None]
